FAERS Safety Report 6097694-4 (Version None)
Quarter: 2009Q1

REPORT INFORMATION
  Report Type: 
  Country: None (occurrence: None)
  Receive Date: 20090227
  Receipt Date: 20090218
  Transmission Date: 20090719
  Serious: Yes (Other)
  Sender: FDA-Public Use
  Company Number: AU-ROCHE-615363

PATIENT
  Sex: Female

DRUGS (1)
  1. XENICAL [Suspect]
     Indication: DRUG USE FOR UNKNOWN INDICATION
     Route: 065

REACTIONS (6)
  - APPENDICITIS PERFORATED [None]
  - DIARRHOEA [None]
  - GASTROINTESTINAL INFECTION [None]
  - IRRITABLE BOWEL SYNDROME [None]
  - URINARY TRACT INFECTION [None]
  - VOMITING [None]
